FAERS Safety Report 9233780 (Version 4)
Quarter: 2013Q2

REPORT INFORMATION
  Report Type: Spontaneous
  Country: US (occurrence: US)
  Receive Date: 20130416
  Receipt Date: 20130617
  Transmission Date: 20140414
  Serious: Yes (Death, Hospitalization, Disabling)
  Sender: FDA-Public Use
  Company Number: US-BAYER-2013-047627

PATIENT
  Age: 22 Year
  Sex: Female
  Weight: 63.49 kg

DRUGS (34)
  1. YASMIN [Suspect]
  2. YAZ [Suspect]
  3. RAPAMUNE [Concomitant]
     Dosage: 5 MG, DAILY
  4. CELLCEPT [Concomitant]
     Dosage: 500 MG,
  5. PROGRAF [Concomitant]
     Dosage: 2 MG,
  6. ATIVAN [Concomitant]
     Dosage: 0.5 MG,
  7. FEOSOL [Concomitant]
     Dosage: 0.5 MG,
  8. PROTONIX [Concomitant]
     Dosage: 40 MG, DAILY
  9. PROTONIX [Concomitant]
  10. SYNTHROID [Concomitant]
     Dosage: 100 ?G, DAILY
  11. NORTHROP [Concomitant]
     Dosage: 10 MG
  12. ASPIRIN [Concomitant]
     Dosage: 81 MG, DAILY
  13. LIPITOR [Concomitant]
     Dosage: 40 MG,
  14. AVANDIA [Concomitant]
     Dosage: 4 MG, DAILY
  15. LISINOPRIL [Concomitant]
     Dosage: 10 MG, DAILY
  16. LOPRESSOR [Concomitant]
     Dosage: 12.5 MG, UNK
  17. SUDAFED [Concomitant]
     Dosage: 1 DAILY
  18. ZOFRAN [Concomitant]
     Dosage: 4 MG, AS NEEDED
  19. LEVAQUIN [Concomitant]
  20. NEXIUM [Concomitant]
  21. ALTACE [Concomitant]
  22. FERROUS SULFATE [Concomitant]
  23. LORAZEPAM [Concomitant]
  24. METOPROLOL [Concomitant]
  25. MYCOPHENOLATE SODIUM [Concomitant]
  26. NORTRIPTYLINE [Concomitant]
  27. ROSIGLITAZONE [Concomitant]
  28. TACROLIMUS [Concomitant]
  29. GUAIFENESIN [Concomitant]
  30. CEFUROXIME [Concomitant]
  31. GANCICLOVIR [Concomitant]
  32. CYTOGAM [CYTOMEGALIE IMMUNGLOBULIN] [Concomitant]
  33. MOXIFLOXACIN [Concomitant]
  34. BACTRIM [Concomitant]

REACTIONS (8)
  - Injury [None]
  - Pain [None]
  - Pulmonary embolism [Fatal]
  - Emotional distress [None]
  - Fear of disease [None]
  - Pain [None]
  - Anxiety [None]
  - Anhedonia [None]
